FAERS Safety Report 6158485-9 (Version None)
Quarter: 2009Q2

REPORT INFORMATION
  Report Type: 
  Country: None (occurrence: None)
  Receive Date: 20090417
  Receipt Date: 20090407
  Transmission Date: 20091009
  Serious: Yes (Hospitalization)
  Sender: FDA-Public Use
  Company Number: JP-ALLERGAN-0905185US

PATIENT
  Sex: Female

DRUGS (4)
  1. ALESION TABLET [Suspect]
     Indication: RHINITIS ALLERGIC
     Dosage: 20 MG, UNK
     Route: 048
     Dates: start: 20090309, end: 20090301
  2. ZESULAN [Suspect]
     Indication: RHINITIS ALLERGIC
     Dosage: 6 MG, UNK
     Route: 048
     Dates: start: 20090309, end: 20090301
  3. ABILIT [Suspect]
     Indication: GASTRIC ULCER
     Dosage: 150 MG, UNK
     Route: 048
     Dates: start: 20090312, end: 20090314
  4. PARIET [Suspect]
     Indication: GASTRIC ULCER
     Dosage: 10 MG, UNK
     Route: 048
     Dates: start: 20081125, end: 20090122

REACTIONS (1)
  - HEPATIC FUNCTION ABNORMAL [None]
